FAERS Safety Report 6359450-9 (Version None)
Quarter: 2009Q3

REPORT INFORMATION
  Report Type: 
  Country: None (occurrence: None)
  Receive Date: 20090917
  Receipt Date: 20090908
  Transmission Date: 20100115
  Serious: Yes (Hospitalization)
  Sender: FDA-Public Use
  Company Number: DK-JNJFOC-20090608458

PATIENT
  Sex: Female
  Weight: 80 kg

DRUGS (10)
  1. REMICADE [Suspect]
     Indication: RHEUMATOID ARTHRITIS
     Route: 042
     Dates: start: 20081001, end: 20090101
  2. CORODIL [Suspect]
     Indication: DRUG USE FOR UNKNOWN INDICATION
  3. VITAMIN [Concomitant]
  4. SELO-ZOK [Concomitant]
  5. AMLODIPINE [Concomitant]
  6. SIMVASTATIN [Concomitant]
  7. SALAZOPYRIN [Concomitant]
  8. MEPYRAMIN [Concomitant]
  9. CALCIUM [Concomitant]
  10. ALL OTHER THERAPEUTIC DRUGS [Concomitant]

REACTIONS (5)
  - ABASIA [None]
  - HYPERTENSION [None]
  - OPEN WOUND [None]
  - PRURITUS [None]
  - RASH ERYTHEMATOUS [None]
